FAERS Safety Report 4660395-0 (Version None)
Quarter: 2005Q2

REPORT INFORMATION
  Report Type: 
  Country: None (occurrence: None)
  Receive Date: 20050512
  Receipt Date: 20040811
  Transmission Date: 20051028
  Serious: Yes (Death, Life-Threatening, Hospitalization)
  Sender: FDA-Public Use
  Company Number: US-SANOFI-SYNTHELABO-F01200402424

PATIENT
  Sex: Male
  Weight: 72.6 kg

DRUGS (19)
  1. OXALIPLATIN [Suspect]
     Indication: NON-SMALL CELL LUNG CANCER
     Route: 042
     Dates: start: 20040728, end: 20040728
  2. GEMCITABINE [Suspect]
     Route: 042
     Dates: start: 20040804, end: 20040804
  3. COMPAZINE [Concomitant]
     Indication: NAUSEA
     Route: 048
     Dates: start: 20040518
  4. ZOFRAN [Concomitant]
     Indication: NAUSEA
     Dosage: 8 MG
     Route: 048
     Dates: start: 20040518
  5. EMLA [Concomitant]
     Indication: PAIN
     Dosage: 2.5 PERCENT
     Route: 061
     Dates: start: 20040603
  6. TUMS [Concomitant]
     Indication: DYSPEPSIA
     Route: 048
     Dates: start: 20040714
  7. TUMS [Concomitant]
     Route: 048
     Dates: start: 20040714
  8. COUMADIN [Concomitant]
     Indication: THROMBOSIS PROPHYLAXIS
     Dosage: 1 MG
     Route: 048
     Dates: start: 20040604
  9. CARDIZEM [Concomitant]
     Indication: CARDIAC DISORDER
     Dosage: 240 MG
     Route: 048
  10. ZOCOR [Concomitant]
     Indication: BLOOD CHOLESTEROL INCREASED
     Dosage: 40 MG
     Route: 048
  11. ASPIRIN [Concomitant]
     Indication: CARDIAC DISORDER
     Dosage: 325 MG
     Route: 048
  12. MULTIVITAMIN [Concomitant]
     Indication: MEDICAL DIET
     Dosage: UNK
     Route: 048
  13. SUPER B COMPLEX [Concomitant]
     Indication: MEDICAL DIET
     Dosage: UNK
     Route: 048
  14. AMBIEN [Concomitant]
     Indication: SLEEP DISORDER
     Dosage: 10 MG
     Route: 048
  15. VALIUM [Concomitant]
     Indication: ANXIETY
     Route: 048
  16. ALOXI [Concomitant]
     Indication: POST PROCEDURAL NAUSEA
     Dosage: 0.25 MG
     Route: 042
     Dates: start: 20040518
  17. TESSALON [Concomitant]
     Indication: COUGH
     Dosage: 200 MG
     Route: 048
     Dates: start: 20040517, end: 20040714
  18. HYCODAN [Concomitant]
     Indication: COUGH
     Route: 065
     Dates: start: 20040507, end: 20040714
  19. CODEINE [Concomitant]
     Indication: COUGH
     Dosage: 30 MG
     Route: 048
     Dates: start: 20040604

REACTIONS (22)
  - ANOREXIA [None]
  - ASCITES [None]
  - BLOOD CREATINE PHOSPHOKINASE INCREASED [None]
  - CARDIAC FAILURE CONGESTIVE [None]
  - CARDIOGENIC SHOCK [None]
  - CHOLECYSTITIS [None]
  - CHOLELITHIASIS [None]
  - DRUG TOXICITY [None]
  - GALLBLADDER DISORDER [None]
  - HEPATITIS ACUTE [None]
  - HYPERAEMIA [None]
  - HYPERKALAEMIA [None]
  - HYPOCALCAEMIA [None]
  - HYPONATRAEMIA [None]
  - METABOLIC DISORDER [None]
  - ORGAN FAILURE [None]
  - PANCYTOPENIA [None]
  - PERICARDIAL EFFUSION [None]
  - PORTAL VEIN THROMBOSIS [None]
  - RENAL FAILURE ACUTE [None]
  - STAPHYLOCOCCAL SEPSIS [None]
  - THROMBOCYTOPENIA [None]
